FAERS Safety Report 7216508-X (Version None)
Quarter: 2011Q1

REPORT INFORMATION
  Report Type: 
  Country: None (occurrence: None)
  Receive Date: 20110107
  Receipt Date: 20110105
  Transmission Date: 20110831
  Serious: Yes (Death, Hospitalization)
  Sender: FDA-Public Use
  Company Number: US-MERCK-1011USA00663

PATIENT
  Age: 57 Year
  Sex: Male

DRUGS (4)
  1. DECADRON [Suspect]
     Indication: ORGANISING PNEUMONIA
     Route: 048
  2. FOLIC ACID [Concomitant]
     Route: 065
  3. OXYCODONE [Concomitant]
     Route: 065
  4. SULFAMETHOXAZOLE AND TRIMETHOPRIM [Concomitant]
     Route: 065

REACTIONS (2)
  - STRONGYLOIDIASIS [None]
  - HYPERGLYCAEMIA [None]
